FAERS Safety Report 9533279 (Version 2)
Quarter: 2013Q4

REPORT INFORMATION
  Report Type: Spontaneous
  Country: JP (occurrence: JP)
  Receive Date: 20130918
  Receipt Date: 20131030
  Transmission Date: 20140711
  Serious: Yes (Hospitalization)
  Sender: FDA-Public Use
  Company Number: JP-BAYER-2013-112111

PATIENT
  Age: 72 Year
  Sex: Male
  Weight: 61 kg

DRUGS (3)
  1. STIVARGA [Suspect]
     Indication: COLON CANCER
     Dosage: 160 MG, QD
     Route: 048
     Dates: start: 20130828, end: 20130903
  2. NAIXAN [Concomitant]
     Indication: PROPHYLAXIS
     Dosage: DAILY DOSE 200 MG
     Route: 048
  3. FOLIAMIN [Concomitant]
     Dosage: DAILY DOSE 5 MG
     Route: 048

REACTIONS (3)
  - Aspartate aminotransferase increased [Recovered/Resolved]
  - Malaise [Recovering/Resolving]
  - Platelet count decreased [Recovered/Resolved]
